FAERS Safety Report 7320174-2 (Version None)
Quarter: 2011Q1

REPORT INFORMATION
  Report Type: 
  Country: None (occurrence: None)
  Receive Date: 20110228
  Receipt Date: 20110215
  Transmission Date: 20110831
  Serious: Yes (Other)
  Sender: FDA-Public Use
  Company Number: PHHY2011NL12361

PATIENT
  Sex: Male

DRUGS (1)
  1. EXFORGE HCT [Suspect]
     Indication: BLOOD PRESSURE
     Dosage: 160 MG VALS, 5 MG AMLO AND 12.5 MG HYDR
     Route: 048
     Dates: start: 20100316, end: 20101215

REACTIONS (9)
  - DIPLOPIA [None]
  - TINNITUS [None]
  - ARTHRALGIA [None]
  - ASTHENOPIA [None]
  - ERYTHEMA [None]
  - VISION BLURRED [None]
  - STRABISMUS [None]
  - AKATHISIA [None]
  - OCULAR HYPERAEMIA [None]
